FAERS Safety Report 4520539-8 (Version None)
Quarter: 2004Q4

REPORT INFORMATION
  Report Type: 
  Country: None (occurrence: None)
  Receive Date: 20041207
  Receipt Date: 20041130
  Transmission Date: 20050328
  Serious: Yes (Death, Hospitalization)
  Sender: FDA-Public Use
  Company Number: US-ABBOTT-04P-163-0281731-00

PATIENT
  Sex: Female

DRUGS (1)
  1. SYNTHROID [Suspect]
     Indication: HYPOTHYROIDISM
     Route: 065

REACTIONS (2)
  - FALL [None]
  - HIP FRACTURE [None]
